FAERS Safety Report 8174374-2 (Version None)
Quarter: 2012Q1

REPORT INFORMATION
  Report Type: 
  Country: None (occurrence: None)
  Receive Date: 20120229
  Receipt Date: 20120221
  Transmission Date: 20120608
  Serious: Yes (Life-Threatening, Hospitalization)
  Sender: FDA-Public Use
  Company Number: CA-JNJFOC-20120109783

PATIENT
  Sex: Female
  Weight: 73.5 kg

DRUGS (1)
  1. REMICADE [Suspect]
     Indication: ANKYLOSING SPONDYLITIS
     Dosage: STOP DATE ALSO REPORTED AS DEC-2011
     Route: 042
     Dates: start: 20070108, end: 20120109

REACTIONS (1)
  - PANCREATIC CARCINOMA [None]
